FAERS Safety Report 7553798-8 (Version None)
Quarter: 2011Q2

REPORT INFORMATION
  Report Type: 
  Country: None (occurrence: None)
  Receive Date: 20110614
  Receipt Date: 20110614
  Transmission Date: 20111010
  Serious: Yes (Life-Threatening)
  Sender: FDA-Public Use
  Company Number: None

PATIENT
  Age: 24 Year
  Sex: Female
  Weight: 89.3586 kg

DRUGS (1)
  1. TERBUTALINE [Suspect]
     Indication: UTERINE CONTRACTIONS ABNORMAL
     Dates: start: 20110604, end: 20110604

REACTIONS (10)
  - NAUSEA [None]
  - DIZZINESS [None]
  - FEAR [None]
  - DYSPNOEA [None]
  - PALPITATIONS [None]
  - ASTHENIA [None]
  - TREMOR [None]
  - DRUG EXPOSURE DURING PREGNANCY [None]
  - REFUSAL OF TREATMENT BY PATIENT [None]
  - HYPOAESTHESIA [None]
